FAERS Safety Report 25800892 (Version 2)
Quarter: 2025Q3

REPORT INFORMATION
  Report Type: Spontaneous
  Country: AU (occurrence: AU)
  Receive Date: 20250915
  Receipt Date: 20250928
  Transmission Date: 20251021
  Serious: Yes (Life-Threatening, Hospitalization, Other)
  Sender: GE HEALTHCARE
  Company Number: AU-GE HEALTHCARE-2025CSU012635

PATIENT
  Age: 79 Year
  Sex: Female
  Weight: 55 kg

DRUGS (1)
  1. OMNIPAQUE [Suspect]
     Active Substance: IOHEXOL
     Indication: Computerised tomogram abdomen
     Route: 042
     Dates: start: 20250908, end: 20250908

REACTIONS (7)
  - Cardiogenic shock [Recovering/Resolving]
  - Anal incontinence [Recovering/Resolving]
  - Mydriasis [Recovering/Resolving]
  - Muscle rigidity [Recovering/Resolving]
  - Unresponsive to stimuli [Recovering/Resolving]
  - Dyspnoea [Recovering/Resolving]
  - Cyanosis [Recovering/Resolving]

NARRATIVE: CASE EVENT DATE: 20250908
